FAERS Safety Report 24428372 (Version 3)
Quarter: 2025Q2

REPORT INFORMATION
  Report Type: Spontaneous
  Country: US (occurrence: US)
  Receive Date: 20241011
  Receipt Date: 20250610
  Transmission Date: 20250716
  Serious: Yes (Other)
  Sender: NOVARTIS
  Company Number: US-002147023-NVSC2024US195240

PATIENT
  Age: 42 Year
  Sex: Female

DRUGS (5)
  1. LETROZOLE [Suspect]
     Active Substance: LETROZOLE
     Indication: Breast cancer metastatic
     Route: 065
     Dates: start: 202405
  2. IBRANCE [Suspect]
     Active Substance: PALBOCICLIB
     Indication: Breast cancer metastatic
     Dosage: 100 MG, QD (21 DAYS THEN 7 DAYS OFF)
     Route: 048
     Dates: start: 202405
  3. PALBOCICLIB [Suspect]
     Active Substance: PALBOCICLIB
     Indication: Product used for unknown indication
     Dosage: 125 MG, QD (1 CAP(S), 5 REFILLS)
     Route: 048
     Dates: start: 20240516
  4. ARANESP [Concomitant]
     Active Substance: DARBEPOETIN ALFA
     Indication: Product used for unknown indication
     Dosage: UNK, Q4W (REPEAT TODAY)
     Route: 065
     Dates: start: 20240821
  5. METHYLPREDNISOLONE [Concomitant]
     Active Substance: METHYLPREDNISOLONE
     Indication: Product used for unknown indication
     Dosage: 4 MG, QD (1 PACKET(S), DAILY, AS DIRECTED ON PACKAGE LABELING, 21 TAB(S), 0 REFILL(S) 1 PACKET (S) O
     Route: 048

REACTIONS (16)
  - Cardiac failure [Unknown]
  - Neutropenia [Unknown]
  - Urinary tract infection [Unknown]
  - Cytopenia [Unknown]
  - Wound [Unknown]
  - Thrombocytopenia [Unknown]
  - Pneumonitis [Unknown]
  - Cough [Unknown]
  - Haemoptysis [Unknown]
  - Dyspnoea [Unknown]
  - Infection [Unknown]
  - Inflammation [Unknown]
  - Anaemia [Unknown]
  - Chronic kidney disease [Unknown]
  - Condition aggravated [Unknown]
  - Vaginal haemorrhage [Unknown]

NARRATIVE: CASE EVENT DATE: 20240916
